FAERS Safety Report 4428208-X (Version None)
Quarter: 2004Q3

REPORT INFORMATION
  Report Type: 
  Country: None (occurrence: None)
  Receive Date: 20040726
  Receipt Date: 20040506
  Transmission Date: 20050211
  Serious: No
  Sender: FDA-Public Use
  Company Number: USA040362176

PATIENT
  Age: 65 Year
  Sex: Female

DRUGS (3)
  1. FORTEO [Suspect]
     Indication: OSTEOPOROSIS
     Dates: start: 20040309
  2. EVISTA [Suspect]
     Dates: start: 20020101
  3. SYNTHROID [Concomitant]

REACTIONS (2)
  - CATARACT [None]
  - VITREOUS DETACHMENT [None]
